FAERS Safety Report 9410960 (Version 3)
Quarter: 2014Q2

REPORT INFORMATION
  Report Type: Spontaneous
  Country: US (occurrence: US)
  Receive Date: 20130719
  Receipt Date: 20140429
  Transmission Date: 20141212
  Serious: Yes (Hospitalization)
  Sender: FDA-Public Use
  Company Number: US-B.I. PHARMACEUTICALS,INC./RIDGEFIELD-2013-BI-21133BP

PATIENT
  Sex: Male
  Weight: 99.79 kg

DRUGS (7)
  1. PRADAXA [Suspect]
     Indication: ATRIAL FIBRILLATION
     Dosage: 300 MG
     Route: 065
     Dates: start: 20110320, end: 20110725
  2. NAPROXEN [Suspect]
     Indication: PRODUCT USED FOR UNKNOWN INDICATION
     Route: 065
     Dates: end: 20110725
  3. ADVAIR DISKUS [Concomitant]
     Dosage: 2 PUF
     Route: 065
  4. BABY ASPIRIN [Concomitant]
     Dosage: 81 MG
     Route: 065
     Dates: end: 20110725
  5. FUROSEMIDE [Concomitant]
     Dosage: 40 MG
     Route: 065
  6. METOPROLOL SUCCINATE [Concomitant]
     Dosage: 50 MG
     Route: 048
  7. SIMVASTATIN [Concomitant]
     Dosage: 40 MG
     Route: 048

REACTIONS (4)
  - Gastrointestinal haemorrhage [Unknown]
  - Anaemia [Unknown]
  - Renal failure acute [Unknown]
  - Coagulopathy [Unknown]
